FAERS Safety Report 18558106 (Version 1)
Quarter: 2020Q4

REPORT INFORMATION
  Report Type: Spontaneous
  Country: GB (occurrence: GB)
  Receive Date: 20201130
  Receipt Date: 20201130
  Transmission Date: 20210114
  Serious: Yes (Other)
  Sender: FDA-Public Use
  Company Number: GB-AUROBINDO-AUR-APL-2020-052010

PATIENT
  Age: 72 Year
  Sex: Male

DRUGS (6)
  1. JANUVIA [Suspect]
     Active Substance: SITAGLIPTIN PHOSPHATE
     Dosage: 1 DOSAGE FORM, ONCE A DAY (100MG, ONE DAILY)
     Route: 048
     Dates: start: 2015
  2. METFORMIN TABLET [Suspect]
     Active Substance: METFORMIN HYDROCHLORIDE
     Indication: TYPE 2 DIABETES MELLITUS
     Dosage: 4 DOSAGE FORM, ONCE A DAY (2000MG, TWO TABLETS TWICE DAILY)
     Route: 048
     Dates: start: 2013
  3. RAMIPRIL. [Concomitant]
     Active Substance: RAMIPRIL
     Indication: PRODUCT USED FOR UNKNOWN INDICATION
     Dosage: 10 MILLIGRAM, ONCE A DAY
     Route: 048
  4. JANUVIA [Suspect]
     Active Substance: SITAGLIPTIN PHOSPHATE
     Indication: DIABETES MELLITUS
     Dosage: 50 MILLIGRAM, ONCE A DAY
     Route: 048
  5. SIMVASTATIN. [Concomitant]
     Active Substance: SIMVASTATIN
     Indication: PRODUCT USED FOR UNKNOWN INDICATION
     Dosage: 20 MILLIGRAM, ONCE A DAY
     Route: 048
  6. FORXIGA [Concomitant]
     Active Substance: DAPAGLIFLOZIN
     Indication: PRODUCT USED FOR UNKNOWN INDICATION
     Dosage: 10 MILLIGRAM, ONCE A DAY
     Route: 048

REACTIONS (7)
  - Neurological symptom [Recovered/Resolved]
  - Nervous system disorder [Recovered/Resolved]
  - Skin discomfort [Unknown]
  - Tremor [Recovered/Resolved]
  - Hypoaesthesia [Recovered/Resolved]
  - Diarrhoea [Recovering/Resolving]
  - Drug effect less than expected [Unknown]

NARRATIVE: CASE EVENT DATE: 2013
